FAERS Safety Report 9714096 (Version 2)
Quarter: 2013Q4

REPORT INFORMATION
  Report Type: Spontaneous
  Country: US (occurrence: US)
  Receive Date: 20131126
  Receipt Date: 20131126
  Transmission Date: 20140711
  Serious: Yes (Disabling, Other)
  Sender: FDA-Public Use
  Company Number: US-GILEAD-2008-0018686

PATIENT
  Age: 82 Year
  Sex: Female

DRUGS (16)
  1. LETAIRIS [Suspect]
     Indication: PULMONARY ARTERIAL HYPERTENSION
     Route: 048
     Dates: start: 20081007, end: 20081029
  2. LASIX [Concomitant]
  3. BROVANA [Concomitant]
  4. PULMICORT [Concomitant]
  5. SPIRIVA [Concomitant]
  6. XOPENEX [Concomitant]
  7. DETROL [Concomitant]
  8. SIMVASTATIN [Concomitant]
  9. VICODIN [Concomitant]
  10. BENTYL [Concomitant]
  11. LEXAPRO [Concomitant]
  12. PREVACID [Concomitant]
  13. MAGNESIUM [Concomitant]
  14. GLUCOSAMINE CHONDROI [Concomitant]
  15. VITAMIN B-12 [Concomitant]
  16. SENNA [Concomitant]

REACTIONS (3)
  - Dyspnoea [Recovering/Resolving]
  - Oedema peripheral [Recovering/Resolving]
  - Weight increased [Recovering/Resolving]
